FAERS Safety Report 10646865 (Version 1)
Quarter: 2014Q4

REPORT INFORMATION
  Report Type: Spontaneous
  Country: AU (occurrence: AU)
  Receive Date: 20141211
  Receipt Date: 20141211
  Transmission Date: 20150529
  Serious: Yes (Other)
  Sender: FDA-Public Use
  Company Number: AU-NAPPMUNDI-GBR-2014-0024289

PATIENT
  Age: 73 Year
  Sex: Male

DRUGS (8)
  1. TRAMAL [Concomitant]
     Active Substance: TRAMADOL
  2. COVERSYL                           /00790702/ [Concomitant]
     Active Substance: PERINDOPRIL
  3. PANADOL [Concomitant]
     Active Substance: ACETAMINOPHEN
  4. ZOCOR [Concomitant]
     Active Substance: SIMVASTATIN
  5. ZOLOFT [Concomitant]
     Active Substance: SERTRALINE HYDROCHLORIDE
  6. NEXIUM [Concomitant]
     Active Substance: ESOMEPRAZOLE MAGNESIUM
  7. ENDEP [Concomitant]
     Active Substance: AMITRIPTYLINE HYDROCHLORIDE
  8. OXYCODONE HYDROCHLORIDE. [Suspect]
     Active Substance: OXYCODONE HYDROCHLORIDE
     Indication: PROCEDURAL PAIN
     Route: 042

REACTIONS (1)
  - Delirium [Recovered/Resolved]
